FAERS Safety Report 23465931 (Version 1)
Quarter: 2024Q1

REPORT INFORMATION
  Report Type: Spontaneous
  Country: US (occurrence: US)
  Receive Date: 20240201
  Receipt Date: 20240201
  Transmission Date: 20240410
  Serious: No
  Sender: FDA-Public Use
  Company Number: US-DRL-USA-LIT/USA/24/0001416

PATIENT
  Age: 47 Year

DRUGS (10)
  1. GLYCOPYRROLATE [Suspect]
     Active Substance: GLYCOPYRROLATE
     Indication: Vaginal discharge
     Dosage: 1 MG TABLET, TWICE A DAY
  2. GLYCOPYRROLATE [Suspect]
     Active Substance: GLYCOPYRROLATE
     Dosage: 4MG TWICE A DAY
     Route: 048
  3. GLYCOPYRROLATE [Suspect]
     Active Substance: GLYCOPYRROLATE
     Dosage: 2 MG, ONLY 2-3 TIMES PER MONTH.
     Route: 048
  4. CLOBETASOL [Concomitant]
     Active Substance: CLOBETASOL
     Indication: Dermatitis contact
  5. CLOBETASOL [Concomitant]
     Active Substance: CLOBETASOL
     Indication: Dermatitis contact
  6. KENALOG [Concomitant]
     Active Substance: TRIAMCINOLONE ACETONIDE
     Indication: Dermatitis contact
  7. KENALOG [Concomitant]
     Active Substance: TRIAMCINOLONE ACETONIDE
     Indication: Neovaginal infection
  8. emtricitabine/tenofovir-disoproxil-fumarate [Concomitant]
     Indication: Vaginal discharge
  9. TRAZODONE [Concomitant]
     Active Substance: TRAZODONE HYDROCHLORIDE
     Indication: Neovaginal perforation
  10. LORATADINE [Concomitant]
     Active Substance: LORATADINE
     Indication: Neovaginal perforation

REACTIONS (4)
  - Off label use [Unknown]
  - Dry mouth [Recovering/Resolving]
  - Dry eye [Recovering/Resolving]
  - Constipation [Recovering/Resolving]
